FAERS Safety Report 8207504-4 (Version None)
Quarter: 2012Q1

REPORT INFORMATION
  Report Type: 
  Country: None (occurrence: None)
  Receive Date: 20120314
  Receipt Date: 20120306
  Transmission Date: 20120608
  Serious: Yes (Death, Other)
  Sender: FDA-Public Use
  Company Number: JP-CELGENEUS-087-50794-11071321

PATIENT
  Sex: Male
  Weight: 54 kg

DRUGS (49)
  1. SCOPOLAMINE [Concomitant]
     Dosage: 10 MILLIGRAM
     Route: 048
     Dates: start: 20110617, end: 20110702
  2. ITRACONAZOLE [Concomitant]
     Route: 065
  3. ARMODAFINIL [Concomitant]
     Dosage: 200 MILLIGRAM
     Route: 048
     Dates: start: 20110616, end: 20110628
  4. FIRSTCIN [Concomitant]
     Indication: BODY TEMPERATURE INCREASED
     Dosage: 4 GRAM
     Route: 041
     Dates: start: 20110614, end: 20110630
  5. GRANISETRON HCL [Concomitant]
     Dosage: 3 MILLIGRAM
     Route: 041
     Dates: start: 20110617, end: 20110623
  6. FUNGUARD [Concomitant]
     Dosage: 400 MILLIGRAM
     Route: 041
     Dates: start: 20110620, end: 20110703
  7. AMBISOME [Concomitant]
     Dosage: 150 MILLIGRAM
     Route: 041
     Dates: start: 20110701, end: 20110706
  8. AXIZON [Concomitant]
     Dosage: 100 MILLIGRAM
     Route: 041
     Dates: start: 20110628, end: 20110628
  9. DORIPENEM MONOHYDRATE [Concomitant]
     Dosage: 1.5 GRAM
     Route: 041
     Dates: start: 20110630, end: 20110704
  10. CHLOR-TRIMETON [Concomitant]
     Dosage: 10 MILLIGRAM
     Route: 041
     Dates: start: 20110703, end: 20110706
  11. METHYLPREDNISOLONE SODIUM SUCCINATE [Concomitant]
     Dosage: 1000 MILLIGRAM
     Route: 041
     Dates: start: 20110703, end: 20110703
  12. OXYGEN [Concomitant]
     Indication: PULMONARY CONGESTION
     Dosage: 3 LITERS
     Route: 065
     Dates: start: 20110701
  13. PROCHLORPERAZINE [Concomitant]
     Dosage: 15 MILLIGRAM
     Route: 048
     Dates: start: 20110624, end: 20110701
  14. FENTANYL CITRATE [Concomitant]
     Dosage: PROPER DOSE
     Route: 065
     Dates: start: 20110703, end: 20110705
  15. ZOSYN [Concomitant]
     Dosage: 13.5 GRAM
     Route: 041
     Dates: start: 20110705, end: 20110706
  16. DOBUTAMINE HCL [Concomitant]
     Dosage: 150 MILLIGRAM
     Route: 041
     Dates: start: 20110705, end: 20110705
  17. MAGNESIUM OXIDE [Concomitant]
     Dosage: 990 MILLIGRAM
     Route: 048
     Dates: start: 20110616, end: 20110701
  18. DICLOFENAC SODIUM [Concomitant]
     Dosage: 75 MILLIGRAM
     Route: 048
     Dates: start: 20110616, end: 20110701
  19. PREDNISOLONE [Concomitant]
     Dosage: 20 MILLIGRAM
     Route: 041
     Dates: start: 20110704, end: 20110706
  20. DOPAMINE HCL [Concomitant]
     Dosage: 2 MICROGRAM
     Route: 065
     Dates: start: 20110701
  21. COTRIM [Concomitant]
     Dosage: 1 DOSAGE FORMS
     Route: 048
     Dates: start: 20110616, end: 20110628
  22. FENTANYL CITRATE [Concomitant]
     Dosage: .2 MILLIGRAM
     Route: 041
     Dates: start: 20110706, end: 20110706
  23. TAZOBACTAM SODIUM / PIPERACILLIN SODIUM [Concomitant]
     Route: 065
     Dates: start: 20110620, end: 20110703
  24. FLURBIPROFEN [Concomitant]
     Dosage: 50 MILLIGRAM
     Route: 041
     Dates: start: 20110628, end: 20110628
  25. LASIX [Concomitant]
     Dosage: 40 MILLIGRAM
     Route: 041
     Dates: start: 20110702, end: 20110704
  26. LASIX [Concomitant]
     Dosage: 10 MILLIGRAM
     Route: 041
     Dates: start: 20110705, end: 20110705
  27. CATABON [Concomitant]
     Dosage: 200 MILLILITER
     Route: 041
     Dates: start: 20110704, end: 20110705
  28. CIPROFLOXACIN [Concomitant]
     Dosage: 6000 MILLIGRAM
     Route: 041
     Dates: start: 20110705, end: 20110706
  29. NEUPOGEN [Concomitant]
     Indication: WHITE BLOOD CELL COUNT DECREASED
     Route: 065
     Dates: start: 20110625, end: 20110706
  30. OXYCONTIN [Concomitant]
     Dosage: 10 MILLIGRAM
     Route: 048
     Dates: start: 20110624, end: 20110703
  31. AMIKACIN SULFATE [Concomitant]
     Dosage: 400 MILLIGRAM
     Route: 041
     Dates: start: 20110620, end: 20110703
  32. ACETAMINOPHEN [Concomitant]
     Dosage: 400 MILLIGRAM
     Route: 048
     Dates: start: 20110616, end: 20110627
  33. VIDAZA [Suspect]
     Indication: MYELODYSPLASTIC SYNDROME
     Dosage: 100 MILLIGRAM
     Route: 058
     Dates: start: 20110617, end: 20110623
  34. MUCOSTA [Concomitant]
     Dosage: 300 MILLIGRAM
     Route: 048
     Dates: start: 20110616, end: 20110628
  35. OXYCODONE HCL [Concomitant]
     Dosage: 2.5 MILLIGRAM
     Route: 048
     Dates: start: 20110624, end: 20110701
  36. GRAN [Concomitant]
     Dosage: 75 MICROGRAM
     Route: 058
     Dates: start: 20110625, end: 20110706
  37. CHLOR-TRIMETON [Concomitant]
     Dosage: 10 MILLIGRAM
     Route: 041
     Dates: start: 20110701, end: 20110701
  38. CATABON [Concomitant]
     Dosage: 200 MILLILITER
     Route: 041
     Dates: start: 20110702, end: 20110702
  39. PHENYTOIN SODIUM CAP [Concomitant]
     Dosage: 125 MILLIGRAM
     Route: 041
     Dates: start: 20110703, end: 20110703
  40. HYDROCORTISONE SODIUM SUCCINATE [Concomitant]
     Route: 065
  41. TRANSFUSION [Concomitant]
     Route: 041
  42. OMEPRAZOLE [Concomitant]
     Dosage: 20 MILLIGRAM
     Route: 048
     Dates: start: 20110616, end: 20110628
  43. PURSENNID [Concomitant]
     Dosage: 10 MILLIGRAM
     Route: 048
     Dates: start: 20110616, end: 20110701
  44. FLURBIPROFEN [Concomitant]
     Dosage: 50 MILLIGRAM
     Route: 041
     Dates: start: 20110626, end: 20110626
  45. AXIZON [Concomitant]
     Dosage: 100 MILLIGRAM
     Route: 041
     Dates: start: 20110703, end: 20110703
  46. VANCOMYCIN HYDROCHLORIDE [Concomitant]
     Dosage: .5 GRAM
     Route: 041
     Dates: start: 20110704, end: 20110704
  47. PANTOL [Concomitant]
     Dosage: 2000 MILLIGRAM
     Route: 041
     Dates: start: 20110704, end: 20110704
  48. OXYCODONE HCL [Concomitant]
     Route: 065
  49. DOPAMINE HCL [Concomitant]
     Indication: PULMONARY CONGESTION
     Dosage: 3 MICROGRAM
     Route: 065
     Dates: start: 20110701

REACTIONS (4)
  - AGRANULOCYTOSIS [None]
  - RENAL IMPAIRMENT [None]
  - INFECTION [None]
  - HEPATIC FAILURE [None]
